FAERS Safety Report 4709000-5 (Version None)
Quarter: 2005Q3

REPORT INFORMATION
  Report Type: 
  Country: None (occurrence: None)
  Receive Date: 20050707
  Receipt Date: 20050627
  Transmission Date: 20060218
  Serious: Yes (Other)
  Sender: FDA-Public Use
  Company Number: HQWYE334824MAR05

PATIENT
  Age: 37 Year
  Sex: Male
  Weight: 93 kg

DRUGS (3)
  1. EFFEXOR [Suspect]
     Indication: DEPRESSION
     Dosage: 75 MG 1X PER 1 DAY, ORAL
     Route: 048
     Dates: start: 20050221
  2. OXYCODONE (OXYCODONE) [Concomitant]
  3. DURAGESIC-100 [Concomitant]

REACTIONS (10)
  - BLINDNESS [None]
  - CHEST PAIN [None]
  - CONFUSIONAL STATE [None]
  - DELUSION [None]
  - EMOTIONAL DISORDER [None]
  - FEAR [None]
  - HEADACHE [None]
  - PARANOIA [None]
  - PSYCHOTIC DISORDER [None]
  - RASH [None]
